FAERS Safety Report 25119560 (Version 1)
Quarter: 2025Q1

REPORT INFORMATION
  Report Type: Spontaneous
  Country: US (occurrence: US)
  Receive Date: 20250325
  Receipt Date: 20250325
  Transmission Date: 20250409
  Serious: Yes (Life-Threatening, Hospitalization)
  Sender: MYLAN
  Company Number: US-MYLANLABS-2025M1025898

PATIENT
  Age: 60 Year
  Sex: Female

DRUGS (4)
  1. EPINEPHRINE [Suspect]
     Active Substance: EPINEPHRINE
     Indication: Respiratory distress
  2. EPINEPHRINE [Suspect]
     Active Substance: EPINEPHRINE
     Indication: Asthma
  3. ALBUTEROL [Suspect]
     Active Substance: ALBUTEROL
     Indication: Respiratory distress
  4. ALBUTEROL [Suspect]
     Active Substance: ALBUTEROL
     Indication: Asthma

REACTIONS (1)
  - Drug ineffective [Unknown]
